FAERS Safety Report 9219590 (Version 2)
Quarter: 2013Q2

REPORT INFORMATION
  Report Type: Spontaneous
  Country: US (occurrence: None)
  Receive Date: 20130405
  Receipt Date: 20130405
  Transmission Date: 20140414
  Serious: Yes (Hospitalization, Other)
  Sender: FDA-Public Use
  Company Number: A-13-083

PATIENT
  Age: 17 Year
  Sex: 0

DRUGS (2)
  1. ALBUTEROL [Suspect]
     Indication: ASTHMA
  2. SALBUTAMOL INHALER [Concomitant]

REACTIONS (6)
  - Asthma [None]
  - Metabolic acidosis [None]
  - Anion gap increased [None]
  - Blood lactic acid increased [None]
  - Sinus tachycardia [None]
  - Hypokalaemia [None]
